FAERS Safety Report 7388569-9 (Version None)
Quarter: 2011Q2

REPORT INFORMATION
  Report Type: 
  Country: None (occurrence: None)
  Receive Date: 20110401
  Receipt Date: 20110330
  Transmission Date: 20111010
  Serious: Yes (Death, Life-Threatening, Hospitalization)
  Sender: FDA-Public Use
  Company Number: PHHY2010US37015

PATIENT
  Sex: Female
  Weight: 89 kg

DRUGS (23)
  1. ALENDRONATE SODIUM [Concomitant]
     Indication: OSTEOPOROSIS
     Dosage: 70 MG EVERY WEEK
     Route: 048
     Dates: start: 20090731
  2. CALCIUM CARBONATE W/VITAMIN D NOS [Concomitant]
     Indication: OSTEOPOROSIS
     Dosage: 1500 MG/400 IU
     Route: 048
  3. FOLIC ACID [Concomitant]
     Indication: ANAEMIA
     Dosage: 1 MG DAILY
     Route: 048
     Dates: start: 20100105
  4. OMEPRAZOLE [Concomitant]
     Indication: GASTROOESOPHAGEAL REFLUX DISEASE
     Dosage: 40 MG DAILY
     Route: 048
     Dates: start: 20100105
  5. PRAMIPEXOLE DIHYDROCHLORIDE [Concomitant]
     Indication: RESTLESS LEGS SYNDROME
     Dosage: 0.25 MG QAM
     Dates: start: 20100105
  6. THIAMINE HYDROCHLORIDE [Concomitant]
     Indication: GENERAL PHYSICAL CONDITION
     Dosage: 100 MG DAILY
     Route: 048
     Dates: start: 20100105
  7. CALCITRIOL [Concomitant]
     Indication: OSTEOPOROSIS
     Dosage: 0.25 UG, QD
     Route: 048
     Dates: start: 20100105
  8. SPIRONOLACTONE [Concomitant]
     Indication: FLUID RETENTION
     Dosage: 50 MG DAILY
     Route: 048
     Dates: start: 20100105
  9. POTASSIUM CHLORIDE [Concomitant]
     Dosage: 20 MG DAILY
     Route: 048
     Dates: start: 20100105
  10. ARIPIPRAZOLE [Concomitant]
     Indication: DEPRESSION
     Dosage: 2 MG DAILY
     Route: 048
     Dates: start: 20100105
  11. CITALOPRAM HYDROBROMIDE [Concomitant]
     Indication: DEPRESSION
     Dosage: 20 MG DAILY
     Route: 048
     Dates: start: 20100105
  12. FUROSEMIDE [Concomitant]
     Indication: HYPERTENSION
     Dosage: 20 MG DAILY
     Route: 048
  13. EXJADE [Suspect]
     Indication: IRON OVERLOAD
  14. SIMVASTATIN [Concomitant]
     Indication: HYPERLIPIDAEMIA
     Dosage: 10 MG QHS
     Route: 048
     Dates: start: 20100105
  15. AMINOCAPROIC ACID [Concomitant]
     Indication: HAEMORRHAGE
     Dosage: 1 G, TID
     Route: 048
     Dates: start: 20100105
  16. ARTIFICIAL TEARS [Concomitant]
     Indication: DRY EYE
     Dosage: 2 DROP QU QID
  17. PREGABALIN [Concomitant]
     Indication: CONVULSION
     Dosage: 200 MG, BID
     Route: 048
     Dates: start: 20100105
  18. MULTI-VITAMINS [Concomitant]
     Indication: GENERAL PHYSICAL CONDITION
     Dosage: 1 DF, UNK
     Route: 048
     Dates: start: 20100105
  19. CYANOCOBALAMIN [Concomitant]
     Indication: ANAEMIA
     Dosage: 500 MCG DAILY
     Route: 048
     Dates: start: 20100105
  20. CODEINE SUL TAB [Concomitant]
     Indication: MUSCULOSKELETAL PAIN
     Dosage: 15 MG
     Route: 048
     Dates: start: 20100105
  21. EXJADE [Suspect]
     Indication: MYELODYSPLASTIC SYNDROME
     Dosage: 2500 MG, QD
     Route: 048
     Dates: start: 20100105, end: 20100413
  22. ALBUTEROL SULFATE AND IPRATROPIUM BROMIDE [Concomitant]
     Indication: WHEEZING
     Dosage: 3/0.5 MG
  23. LACOSAMIDE [Concomitant]
     Indication: CONVULSION
     Dosage: 150 MG, BID
     Route: 048
     Dates: start: 20100105

REACTIONS (12)
  - BRADYCARDIA [None]
  - ESCHERICHIA URINARY TRACT INFECTION [None]
  - CARDIAC ARREST [None]
  - PYREXIA [None]
  - NEUTROPENIA [None]
  - SICK SINUS SYNDROME [None]
  - EPISTAXIS [None]
  - WOUND DEHISCENCE [None]
  - ATRIOVENTRICULAR BLOCK [None]
  - DEATH [None]
  - PLATELET COUNT DECREASED [None]
  - ABDOMINAL PAIN [None]
